FAERS Safety Report 7739947-7 (Version None)
Quarter: 2011Q3

REPORT INFORMATION
  Report Type: 
  Country: None (occurrence: None)
  Receive Date: 20110909
  Receipt Date: 20110907
  Transmission Date: 20111222
  Serious: Yes (Death, Other)
  Sender: FDA-Public Use
  Company Number: PHFR2010GB05334

PATIENT
  Sex: Female

DRUGS (3)
  1. CLOZAPINE [Suspect]
     Indication: SCHIZOPHRENIA
     Dosage: 300 MG/DAY
     Route: 048
     Dates: start: 20081023
  2. CLOZAPINE [Concomitant]
  3. SERLAIN [Concomitant]

REACTIONS (3)
  - EMBOLISM [None]
  - CHEST PAIN [None]
  - PNEUMONIA [None]
